FAERS Safety Report 8823330 (Version 1)
Quarter: 2012Q4

REPORT INFORMATION
  Report Type: 
  Country: US (occurrence: US)
  Receive Date: 20121003
  Receipt Date: 20121003
  Transmission Date: 20130627
  Serious: Yes (Hospitalization, Other)
  Sender: FDA-Public Use
  Company Number: US-009507513-1210USA000589

PATIENT
  Age: 47 Year
  Sex: Female

DRUGS (8)
  1. JANUMET [Suspect]
     Dosage: 500 mg, bid
     Route: 048
  2. GLIPIZIDE [Suspect]
  3. ACTOS [Suspect]
  4. ASPIRIN [Concomitant]
  5. SIMVASTATIN [Concomitant]
  6. LOVASTATIN [Concomitant]
  7. LISINOPRIL [Concomitant]
  8. VITAMINS (UNSPECIFIED) [Concomitant]

REACTIONS (10)
  - Renal failure acute [Unknown]
  - Chills [Unknown]
  - Hypoglycaemia [Unknown]
  - Vomiting [Unknown]
  - Urosepsis [Unknown]
  - Diarrhoea [Unknown]
  - Night sweats [Unknown]
  - Urine output decreased [Unknown]
  - Nausea [Unknown]
  - Toxicity to various agents [Unknown]
